FAERS Safety Report 8304288-6 (Version None)
Quarter: 2012Q2

REPORT INFORMATION
  Report Type: 
  Country: None (occurrence: None)
  Receive Date: 20120423
  Receipt Date: 20120423
  Transmission Date: 20120825
  Serious: Yes (Hospitalization)
  Sender: FDA-Public Use
  Company Number: None

PATIENT
  Age: 80 Year
  Sex: Female
  Weight: 112.49 kg

DRUGS (1)
  1. PRADAXA [Suspect]

REACTIONS (3)
  - FATIGUE [None]
  - DYSPNOEA EXERTIONAL [None]
  - RECTAL HAEMORRHAGE [None]
